FAERS Safety Report 18788938 (Version 1)
Quarter: 2021Q1

REPORT INFORMATION
  Report Type: Spontaneous
  Country: FR (occurrence: FR)
  Receive Date: 20210126
  Receipt Date: 20210126
  Transmission Date: 20210419
  Serious: Yes (Hospitalization)
  Sender: FDA-Public Use
  Company Number: FR-PFIZER INC-2021049079

PATIENT
  Age: 74 Year
  Sex: Male
  Weight: 83 kg

DRUGS (11)
  1. XANAX [Suspect]
     Active Substance: ALPRAZOLAM
  2. TAHOR [Concomitant]
     Active Substance: ATORVASTATIN CALCIUM
     Indication: DYSLIPIDAEMIA
  3. CARBOSYLANE [CHARCOAL, ACTIVATED;DIMETICONE] [Concomitant]
  4. ATTENTIN [DEXAMFETAMINE SULFATE] [Suspect]
     Active Substance: DEXTROAMPHETAMINE SULFATE
     Dosage: 30 MG, 1X/DAY
     Route: 048
     Dates: start: 2020, end: 20201219
  5. LERCANIDIPINE [Suspect]
     Active Substance: LERCANIDIPINE
  6. RESITUNE [Concomitant]
     Active Substance: ASPIRIN
  7. XATRAL [Suspect]
     Active Substance: ALFUZOSIN
  8. ATTENTIN [DEXAMFETAMINE SULFATE] [Suspect]
     Active Substance: DEXTROAMPHETAMINE SULFATE
     Indication: HYPERSOMNIA
     Dosage: UNK
     Route: 048
     Dates: start: 20170109, end: 2018
  9. GLIMEPIRIDE. [Concomitant]
     Active Substance: GLIMEPIRIDE
     Indication: INSULIN-REQUIRING TYPE 2 DIABETES MELLITUS
     Route: 048
  10. RYTHMOL [Suspect]
     Active Substance: PROPAFENONE HYDROCHLORIDE
  11. METFORMIN [Concomitant]
     Active Substance: METFORMIN HYDROCHLORIDE
     Indication: INSULIN-REQUIRING TYPE 2 DIABETES MELLITUS
     Route: 048

REACTIONS (2)
  - Supraventricular tachycardia [Recovered/Resolved]
  - Transient ischaemic attack [Recovered/Resolved]

NARRATIVE: CASE EVENT DATE: 20201219
